FAERS Safety Report 20656766 (Version 1)
Quarter: 2022Q1

REPORT INFORMATION
  Report Type: Report from Study
  Country: IT (occurrence: IT)
  Receive Date: 20220331
  Receipt Date: 20220331
  Transmission Date: 20220423
  Serious: Yes (Hospitalization, Other)
  Sender: FDA-Public Use
  Company Number: IT-NOVARTISPH-NVSC2021IT156748

PATIENT
  Age: 20 Year
  Sex: Male
  Weight: 73.5 kg

DRUGS (2)
  1. CRIZANLIZUMAB [Suspect]
     Active Substance: CRIZANLIZUMAB
     Indication: Sickle cell disease
     Dosage: 5 MG/KG
     Route: 042
     Dates: start: 20210401
  2. CRIZANLIZUMAB [Suspect]
     Active Substance: CRIZANLIZUMAB
     Dosage: 5 MG/KG
     Route: 042
     Dates: start: 20210401, end: 20211126

REACTIONS (18)
  - Sickle cell anaemia with crisis [Recovered/Resolved]
  - Abdominal pain upper [Unknown]
  - Acute chest syndrome [Recovered/Resolved]
  - Dyspnoea [Unknown]
  - Sickle cell anaemia with crisis [Recovered/Resolved]
  - Pain in extremity [Recovered/Resolved]
  - Spinal pain [Recovered/Resolved]
  - Arrhythmia [Not Recovered/Not Resolved]
  - Sickle cell anaemia with crisis [Recovered/Resolved]
  - Arthralgia [Recovered/Resolved]
  - Blood bilirubin increased [Unknown]
  - Aspartate aminotransferase increased [Unknown]
  - Blood bilirubin unconjugated increased [Unknown]
  - Haemoglobin decreased [Unknown]
  - Oxygen saturation decreased [Unknown]
  - Inflammation [Unknown]
  - Atrioventricular block [Not Recovered/Not Resolved]
  - Pyrexia [Unknown]

NARRATIVE: CASE EVENT DATE: 20210701
